FAERS Safety Report 5149848-9 (Version None)
Quarter: 2006Q4

REPORT INFORMATION
  Report Type: 
  Country: None (occurrence: None)
  Receive Date: 20061108
  Receipt Date: 20061026
  Transmission Date: 20070319
  Serious: Yes (Other)
  Sender: FDA-Public Use
  Company Number: 2006131367

PATIENT
  Age: 47 Year
  Sex: Male
  Weight: 120.2032 kg

DRUGS (3)
  1. LYRICA [Suspect]
     Indication: CONVULSION
     Dosage: 200 MG (100 MG, 2 IN 1 D)
  2. CARBATROL [Concomitant]
  3. LAMICTAL [Concomitant]

REACTIONS (2)
  - CHEST PAIN [None]
  - VISUAL DISTURBANCE [None]
